FAERS Safety Report 16630036 (Version 4)
Quarter: 2020Q1

REPORT INFORMATION
  Report Type: Report from Study
  Country: ZA (occurrence: ZA)
  Receive Date: 20190725
  Receipt Date: 20200129
  Transmission Date: 20200409
  Serious: Yes (Other)
  Sender: FDA-Public Use
  Company Number: PHHY2017ZA146574

PATIENT
  Age: 17 Year
  Sex: Female

DRUGS (4)
  1. DESFERAL [Suspect]
     Active Substance: DEFEROXAMINE MESYLATE
     Indication: THALASSAEMIA
     Dosage: UNK (4 VIALS 3X WEEK
     Route: 065
     Dates: start: 201901, end: 201909
  2. EXJADE [Suspect]
     Active Substance: DEFERASIROX
     Indication: THALASSAEMIA
     Dosage: 1500 MG, QD
     Route: 065
     Dates: start: 201704
  3. EXJADE [Suspect]
     Active Substance: DEFERASIROX
     Dosage: 1500 MG, QD
     Route: 065
     Dates: start: 20170823
  4. EXJADE [Suspect]
     Active Substance: DEFERASIROX
     Dosage: 1750 MG, QD
     Route: 065
     Dates: start: 20191009

REACTIONS (16)
  - Abdominal pain upper [Not Recovered/Not Resolved]
  - Serum ferritin increased [Unknown]
  - Gingival swelling [Unknown]
  - Nausea [Unknown]
  - Platelet count decreased [Unknown]
  - Abdominal pain [Unknown]
  - Haematemesis [Recovered/Resolved]
  - Oesophagitis [Unknown]
  - Gastrointestinal pain [Not Recovered/Not Resolved]
  - Gastrointestinal ulcer [Unknown]
  - Dyspepsia [Unknown]
  - Stress [Unknown]
  - Eating disorder [Unknown]
  - Product use issue [Unknown]
  - Gastrointestinal haemorrhage [Unknown]
  - Gingivitis [Unknown]

NARRATIVE: CASE EVENT DATE: 201710
